FAERS Safety Report 10167187 (Version 1)
Quarter: 2014Q2

REPORT INFORMATION
  Report Type: Spontaneous
  Country: US (occurrence: US)
  Receive Date: 20140512
  Receipt Date: 20140512
  Transmission Date: 20141212
  Serious: No
  Sender: FDA-Public Use
  Company Number: US-BAXTER-2014BAX022081

PATIENT
  Sex: Male

DRUGS (2)
  1. DIANEAL LOW CALCIUM [Suspect]
     Indication: RENAL FAILURE CHRONIC
     Dosage: 2 BAGS
     Route: 033
     Dates: end: 20140429
  2. EXTRANEAL [Suspect]
     Indication: RENAL FAILURE CHRONIC
     Dosage: 1 BAG
     Route: 033

REACTIONS (2)
  - Dehydration [Recovering/Resolving]
  - Asthenia [Recovering/Resolving]
